FAERS Safety Report 6492980-8 (Version None)
Quarter: 2009Q4

REPORT INFORMATION
  Report Type: 
  Country: None (occurrence: None)
  Receive Date: 20091214
  Receipt Date: 20091204
  Transmission Date: 20100525
  Serious: Yes (Death)
  Sender: FDA-Public Use
  Company Number: GB-ABBOTT-09P-167-0606662-00

PATIENT
  Sex: Female

DRUGS (1)
  1. SEVOFLURANE [Suspect]
     Indication: SOMNOLENCE

REACTIONS (2)
  - DRUG TOXICITY [None]
  - WRONG TECHNIQUE IN DRUG USAGE PROCESS [None]
